FAERS Safety Report 8073102-9 (Version None)
Quarter: 2012Q1

REPORT INFORMATION
  Report Type: 
  Country: None (occurrence: None)
  Receive Date: 20120120
  Receipt Date: 20120110
  Transmission Date: 20120608
  Serious: Yes (Congenital Anomaly)
  Sender: FDA-Public Use
  Company Number: 2011MA018181

PATIENT
  Weight: 3.43 kg

DRUGS (2)
  1. FERROUS SUL ELX [Suspect]
     Indication: PROPHYLAXIS
     Dosage: TRPL
     Dates: start: 20110815
  2. TYPHIM VI [Suspect]
     Indication: IMMUNISATION
     Dosage: TRPL
     Dates: start: 20110415, end: 20110415

REACTIONS (2)
  - MATERNAL DRUGS AFFECTING FOETUS [None]
  - SYNDACTYLY [None]
